FAERS Safety Report 7680632-8 (Version None)
Quarter: 2011Q3

REPORT INFORMATION
  Report Type: 
  Country: None (occurrence: None)
  Receive Date: 20110811
  Receipt Date: 20110811
  Transmission Date: 20111222
  Serious: Yes (Life-Threatening)
  Sender: FDA-Public Use
  Company Number: None

PATIENT
  Age: 65 Year
  Sex: Male
  Weight: 81.6 kg

DRUGS (1)
  1. MOXIFLOXACIN [Suspect]
     Indication: PNEUMONIA
     Dosage: 400 MG EVERY DAY IV
     Route: 042
     Dates: start: 20110804, end: 20110806

REACTIONS (4)
  - WHEEZING [None]
  - RASH PRURITIC [None]
  - DYSPNOEA [None]
  - ANAPHYLACTIC REACTION [None]
